FAERS Safety Report 11459509 (Version 1)
Quarter: 2015Q3

REPORT INFORMATION
  Report Type: Spontaneous
  Country: US (occurrence: US)
  Receive Date: 20150904
  Receipt Date: 20150904
  Transmission Date: 20151125
  Serious: No
  Sender: FDA-Public Use
  Company Number: US-TARO-2014TAR00204

PATIENT
  Sex: Female
  Weight: 63.39 kg

DRUGS (6)
  1. WARFARIN SODIUM TABLETS USP 2MG [Suspect]
     Active Substance: WARFARIN SODIUM
     Indication: ATRIAL FIBRILLATION
     Dosage: 4 MG, 5X/WEEK
     Route: 048
     Dates: start: 2013
  2. LANOXIN [Concomitant]
     Active Substance: DIGOXIN
  3. TYLENOL [Concomitant]
     Active Substance: ACETAMINOPHEN
     Dosage: UNK, 1X/DAY
  4. TOPROL XL [Concomitant]
     Active Substance: METOPROLOL SUCCINATE
     Dosage: UNK
  5. WARFARIN SODIUM TABLETS USP 2MG [Suspect]
     Active Substance: WARFARIN SODIUM
     Indication: CARDIAC PACEMAKER INSERTION
     Dosage: 6 MG, 2X/WEEK
     Route: 048
     Dates: start: 2013
  6. GENERIC AMBIEN [Concomitant]
     Indication: INSOMNIA
     Dosage: 0.5 TABLETS, UNK

REACTIONS (6)
  - Pruritus [Not Recovered/Not Resolved]
  - Contusion [Recovering/Resolving]
  - Skin fragility [Not Recovered/Not Resolved]
  - Pain of skin [Not Recovered/Not Resolved]
  - Alopecia [Not Recovered/Not Resolved]
  - Rash [Not Recovered/Not Resolved]

NARRATIVE: CASE EVENT DATE: 2013
